FAERS Safety Report 21936026 (Version 2)
Quarter: 2023Q1

REPORT INFORMATION
  Report Type: Other
  Country: US (occurrence: US)
  Receive Date: 20230201
  Receipt Date: 20230224
  Transmission Date: 20230417
  Serious: Yes (Hospitalization, Other)
  Sender: FDA-Public Use
  Company Number: US-Covis Pharma GmbH-2023COV00185

PATIENT
  Age: 37 Year
  Sex: Female

DRUGS (7)
  1. MAKENA [Suspect]
     Active Substance: HYDROXYPROGESTERONE CAPROATE
     Indication: Premature delivery
     Route: 058
     Dates: start: 20221005, end: 20230119
  2. VITAMIN D3 [Concomitant]
     Active Substance: CHOLECALCIFEROL
     Dosage: 5 TAKE 1 TABLET BY MOUTH ONCE DAILY
  3. FERROUS SULFATE [Concomitant]
     Active Substance: FERROUS SULFATE
     Dosage: 65 FE 1 BY MOUTH EVERY DAY
  4. TYLENOL [Concomitant]
     Active Substance: ACETAMINOPHEN
     Dosage: BID
  5. Prenatal Adult Gummy [Concomitant]
     Dosage: 0.4-25 MG DAILY
  6. ADVAIR DISKUS [Concomitant]
     Active Substance: FLUTICASONE PROPIONATE\SALMETEROL XINAFOATE
     Dosage: 250-50 MCG 1-2 PUFFS ONCE A DAY
  7. Albuterol Sulfate HF [Concomitant]

REACTIONS (5)
  - Failed induction of labour [Recovered/Resolved]
  - Pre-eclampsia [Recovered/Resolved]
  - Premature labour [Recovered/Resolved]
  - Premature delivery [Recovered/Resolved]
  - Product dose omission issue [Unknown]

NARRATIVE: CASE EVENT DATE: 20221220
